FAERS Safety Report 5454970-3 (Version None)
Quarter: 2007Q3

REPORT INFORMATION
  Report Type: 
  Country: None (occurrence: None)
  Receive Date: 20070917
  Receipt Date: 20070905
  Transmission Date: 20080115
  Serious: Yes (Other)
  Sender: FDA-Public Use
  Company Number: US-PFIZER INC-2007074904

PATIENT
  Sex: Female
  Weight: 81.818 kg

DRUGS (2)
  1. CHANTIX [Suspect]
     Indication: SMOKING CESSATION THERAPY
     Dates: start: 20070830, end: 20070904
  2. DIFLUCAN [Suspect]
     Indication: FUNGAL INFECTION

REACTIONS (7)
  - ABNORMAL DREAMS [None]
  - DIZZINESS [None]
  - FACIAL PAIN [None]
  - HYPOAESTHESIA ORAL [None]
  - NAUSEA [None]
  - RASH [None]
  - URTICARIA [None]
